FAERS Safety Report 9773202 (Version 1)
Quarter: 2013Q4

REPORT INFORMATION
  Report Type: Spontaneous
  Country: US (occurrence: US)
  Receive Date: 20131219
  Receipt Date: 20131219
  Transmission Date: 20140711
  Serious: Yes (Other)
  Sender: FDA-Public Use
  Company Number: US-ASTRAZENECA-2013SE90839

PATIENT
  Age: 52 Year
  Sex: Male
  Weight: 70.3 kg

DRUGS (6)
  1. BRILINTA [Suspect]
     Indication: STENT PLACEMENT
     Route: 048
     Dates: start: 20131204
  2. BRILINTA [Suspect]
     Indication: STENT PLACEMENT
     Route: 048
     Dates: end: 20131208
  3. ASPRIN [Concomitant]
  4. CLOPIDOGREL [Concomitant]
  5. CO Q 10 [Concomitant]
  6. PRAVASTATIN [Concomitant]

REACTIONS (3)
  - Pain in extremity [Unknown]
  - Contusion [Unknown]
  - Local swelling [Unknown]
